FAERS Safety Report 8304499-X (Version None)
Quarter: 2012Q2

REPORT INFORMATION
  Report Type: 
  Country: None (occurrence: None)
  Receive Date: 20120423
  Receipt Date: 20120412
  Transmission Date: 20120825
  Serious: Yes (Other)
  Sender: FDA-Public Use
  Company Number: NL-ASTRAZENECA-2012SE23745

PATIENT
  Sex: Female

DRUGS (1)
  1. ARIMIDEX [Suspect]
     Route: 048
     Dates: start: 20111201

REACTIONS (1)
  - AGRANULOCYTOSIS [None]
